FAERS Safety Report 8918121 (Version 2)
Quarter: 2014Q3

REPORT INFORMATION
  Report Type: Spontaneous
  Country: US (occurrence: US)
  Receive Date: 20121120
  Receipt Date: 20140719
  Transmission Date: 20150326
  Serious: Yes (Life-Threatening, Other)
  Sender: FDA-Public Use
  Company Number: PHHY2012US104989

PATIENT
  Age: 81 Year
  Sex: Male

DRUGS (6)
  1. FOLIC ACID. [Concomitant]
     Active Substance: FOLIC ACID
     Indication: CORONARY ARTERY DISEASE
  2. BICALUTAMIDE. [Suspect]
     Active Substance: BICALUTAMIDE
     Indication: PROSTATE CANCER METASTATIC
     Dosage: 150 MG, EVERY DAY
     Route: 048
  3. ASPIRIN LOW [Concomitant]
     Indication: HYPERTENSION
  4. SIMVASTATIN. [Concomitant]
     Active Substance: SIMVASTATIN
     Indication: HYPERLIPIDAEMIA
  5. IRBESARTAN. [Concomitant]
     Active Substance: IRBESARTAN
     Indication: CEREBROVASCULAR ACCIDENT
  6. RANITIDINE [Concomitant]
     Active Substance: RANITIDINE\RANITIDINE HYDROCHLORIDE
     Indication: AORTIC ANEURYSM

REACTIONS (9)
  - Hepatotoxicity [Recovering/Resolving]
  - Fatigue [Recovering/Resolving]
  - Decreased appetite [Recovering/Resolving]
  - Jaundice [Recovering/Resolving]
  - Chromaturia [Recovering/Resolving]
  - Lethargy [Recovering/Resolving]
  - Coagulopathy [Recovering/Resolving]
  - Ocular icterus [Recovering/Resolving]
  - Hyperbilirubinaemia [Recovering/Resolving]
